FAERS Safety Report 18484020 (Version 4)
Quarter: 2021Q2

REPORT INFORMATION
  Report Type: Report from Study
  Country: None (occurrence: US)
  Receive Date: 20201109
  Receipt Date: 20210618
  Transmission Date: 20210717
  Serious: Yes (Hospitalization, Other)
  Sender: FDA-Public Use
  Company Number: US-ABBVIE-19K-163-2822342-00

PATIENT
  Age: 68 Year
  Sex: Female
  Weight: 104.42 kg

DRUGS (54)
  1. PRILOSEC [Concomitant]
     Active Substance: OMEPRAZOLE MAGNESIUM
     Indication: IMPAIRED GASTRIC EMPTYING
  2. ENALAPRIL [Concomitant]
     Active Substance: ENALAPRIL
     Indication: HYPERTENSION
  3. TYLENOL [Concomitant]
     Active Substance: ACETAMINOPHEN
     Indication: ANXIETY
  4. PROBIOTIC [Concomitant]
     Active Substance: PROBIOTICS NOS
     Indication: IMPAIRED GASTRIC EMPTYING
  5. GAS?X [Concomitant]
     Active Substance: DIMETHICONE
     Indication: SUPPLEMENTATION THERAPY
  6. FORTIFIED PROCAINE PENICILLIN [Concomitant]
     Indication: PRODUCT USED FOR UNKNOWN INDICATION
  7. AMITRIPTYLINE [Concomitant]
     Active Substance: AMITRIPTYLINE
     Indication: ANXIETY
  8. HYDROCHLOROTHIAZIDE. [Concomitant]
     Active Substance: HYDROCHLOROTHIAZIDE
     Indication: HYPERTENSION
  9. AMITRIPTYLINE [Concomitant]
     Active Substance: AMITRIPTYLINE
     Indication: ANXIETY
  10. LOVASTATIN. [Concomitant]
     Active Substance: LOVASTATIN
     Indication: ANXIETY
  11. TRIAMCINOLONE ACETONIDE. [Concomitant]
     Active Substance: TRIAMCINOLONE ACETONIDE
     Indication: PSORIASIS
  12. TURMERIC [Concomitant]
     Active Substance: HERBALS\TURMERIC
     Indication: SUPPLEMENTATION THERAPY
  13. ALLEGRA [Concomitant]
     Active Substance: FEXOFENADINE HYDROCHLORIDE
     Indication: SEASONAL ALLERGY
  14. HUMIRA [Suspect]
     Active Substance: ADALIMUMAB
     Dosage: CITRATE FREE
     Route: 058
     Dates: start: 201909, end: 202009
  15. AMITRIPTYLINE [Concomitant]
     Active Substance: AMITRIPTYLINE
     Indication: DEPRESSION
  16. AMITRIPTYLINE [Concomitant]
     Active Substance: AMITRIPTYLINE
     Indication: IRRITABLE BOWEL SYNDROME
  17. IBUPROFEN. [Concomitant]
     Active Substance: IBUPROFEN
     Indication: ARTHRALGIA
  18. TYLENOL PM [Concomitant]
     Active Substance: ACETAMINOPHEN\DIPHENHYDRAMINE
     Indication: ANXIETY
  19. VITAMIN B12 [Concomitant]
     Active Substance: CYANOCOBALAMIN
     Indication: ANXIETY
  20. ASPIRIN. [Concomitant]
     Active Substance: ASPIRIN
     Indication: PROPHYLAXIS
  21. VITAMIN C [Concomitant]
     Active Substance: ASCORBIC ACID
     Indication: VITAMIN SUPPLEMENTATION
  22. PROBIOTIC [Concomitant]
     Active Substance: PROBIOTICS NOS
     Indication: ANXIETY
  23. HUMIRA [Suspect]
     Active Substance: ADALIMUMAB
     Dosage: CITRATE FREE
     Route: 058
     Dates: start: 20201023
  24. DICLOFENAC [Concomitant]
     Active Substance: DICLOFENAC
     Indication: PSORIATIC ARTHROPATHY
  25. PRILOSEC [Concomitant]
     Active Substance: OMEPRAZOLE MAGNESIUM
     Indication: DIVERTICULUM
  26. LOVASTATIN. [Concomitant]
     Active Substance: LOVASTATIN
     Indication: HYPERCHOLESTEROLAEMIA
  27. ASPIRIN. [Concomitant]
     Active Substance: ASPIRIN
     Indication: ANXIETY
  28. TRIAMCINOLONE ACETONIDE. [Concomitant]
     Active Substance: TRIAMCINOLONE ACETONIDE
     Indication: ANXIETY
  29. TYLENOL [Concomitant]
     Active Substance: ACETAMINOPHEN
     Indication: ARTHRALGIA
  30. FLONASE [Concomitant]
     Active Substance: FLUTICASONE PROPIONATE
     Indication: SEASONAL ALLERGY
  31. MIRALAX [Concomitant]
     Active Substance: POLYETHYLENE GLYCOL 3350
     Indication: ANXIETY
  32. HUMIRA [Suspect]
     Active Substance: ADALIMUMAB
     Dosage: CITRATE FREE
     Route: 058
  33. IBUPROFEN. [Concomitant]
     Active Substance: IBUPROFEN
     Indication: ANXIETY
  34. IRON [Concomitant]
     Active Substance: IRON
     Indication: MINERAL SUPPLEMENTATION
  35. IRON [Concomitant]
     Active Substance: IRON
     Indication: ANXIETY
  36. CETIRIZINE [Concomitant]
     Active Substance: CETIRIZINE HYDROCHLORIDE
     Indication: SEASONAL ALLERGY
  37. CETIRIZINE [Concomitant]
     Active Substance: CETIRIZINE HYDROCHLORIDE
     Indication: ANXIETY
  38. TYLENOL PM [Concomitant]
     Active Substance: ACETAMINOPHEN\DIPHENHYDRAMINE
     Indication: SLEEP DISORDER
  39. VITAMIN B12 [Concomitant]
     Active Substance: CYANOCOBALAMIN
     Indication: VITAMIN SUPPLEMENTATION
  40. MIRALAX [Concomitant]
     Active Substance: POLYETHYLENE GLYCOL 3350
     Indication: CONSTIPATION
  41. ALLOPURINOL. [Concomitant]
     Active Substance: ALLOPURINOL
     Indication: HYPERTENSION
  42. LOVASTATIN. [Concomitant]
     Active Substance: LOVASTATIN
     Indication: BLOOD CHOLESTEROL INCREASED
  43. HYOSCYAMINE. [Concomitant]
     Active Substance: HYOSCYAMINE
     Indication: IRRITABLE BOWEL SYNDROME
  44. HYOSCYAMINE. [Concomitant]
     Active Substance: HYOSCYAMINE
     Indication: ANXIETY
  45. TURMERIC [Concomitant]
     Active Substance: HERBALS\TURMERIC
     Indication: ANXIETY
  46. FLONASE [Concomitant]
     Active Substance: FLUTICASONE PROPIONATE
     Indication: ANXIETY
  47. GAS?X [Concomitant]
     Active Substance: DIMETHICONE
     Indication: ANXIETY
  48. COVID?19 VACCINE [Concomitant]
     Indication: COVID-19 IMMUNISATION
     Route: 030
  49. HUMIRA [Suspect]
     Active Substance: ADALIMUMAB
     Indication: PSORIASIS
     Dosage: CITRATE FREE
     Route: 058
     Dates: start: 201801, end: 20190326
  50. HUMIRA [Suspect]
     Active Substance: ADALIMUMAB
     Indication: PSORIATIC ARTHROPATHY
     Dosage: CITRATE FREE
     Route: 058
     Dates: start: 20190424, end: 201908
  51. DICLOFENAC SODIUM. [Concomitant]
     Active Substance: DICLOFENAC SODIUM
     Indication: BACK PAIN
  52. PRILOSEC [Concomitant]
     Active Substance: OMEPRAZOLE MAGNESIUM
     Indication: IRRITABLE BOWEL SYNDROME
  53. AMITRIPTYLINE [Concomitant]
     Active Substance: AMITRIPTYLINE
     Indication: DEPRESSION
  54. VITAMIN C [Concomitant]
     Active Substance: ASCORBIC ACID
     Indication: ANXIETY

REACTIONS (15)
  - Condition aggravated [Not Recovered/Not Resolved]
  - Arthropathy [Recovered/Resolved]
  - Psoriasis [Recovered/Resolved]
  - Spondylitis [Not Recovered/Not Resolved]
  - Knee arthroplasty [Recovered/Resolved]
  - Knee arthroplasty [Recovered/Resolved]
  - Back disorder [Unknown]
  - Scoliosis [Not Recovered/Not Resolved]
  - Spinal fusion surgery [Recovered/Resolved]
  - Arthralgia [Not Recovered/Not Resolved]
  - Inappropriate schedule of product discontinuation [Unknown]
  - Intervertebral disc protrusion [Not Recovered/Not Resolved]
  - Hip arthroplasty [Recovered/Resolved]
  - Fall [Unknown]
  - Arthritis [Not Recovered/Not Resolved]

NARRATIVE: CASE EVENT DATE: 2018
